FAERS Safety Report 24326391 (Version 1)
Quarter: 2024Q3

REPORT INFORMATION
  Report Type: Spontaneous
  Country: US (occurrence: None)
  Receive Date: 20240917
  Receipt Date: 20240917
  Transmission Date: 20241017
  Serious: No
  Sender: ASTRAZENECA
  Company Number: 2024A210781

PATIENT
  Age: 82 Year
  Sex: Female

DRUGS (4)
  1. TAGRISSO [Suspect]
     Active Substance: OSIMERTINIB
     Indication: Rectosigmoid cancer
     Route: 048
     Dates: start: 202210
  2. LONSURF [Suspect]
     Active Substance: TIPIRACIL HYDROCHLORIDE\TRIFLURIDINE
     Indication: Rectosigmoid cancer
     Dosage: (1 IN 12 HOUR)
     Route: 048
     Dates: start: 202407
  3. CABOMETYX [Suspect]
     Active Substance: CABOZANTINIB S-MALATE
     Indication: Rectosigmoid cancer
     Route: 048
     Dates: start: 202302
  4. AMLODIPINE [Concomitant]
     Active Substance: AMLODIPINE BESYLATE
     Indication: Product used for unknown indication

REACTIONS (6)
  - Blister [Unknown]
  - Back pain [Unknown]
  - Abdominal pain upper [Unknown]
  - Decreased appetite [Unknown]
  - Peripheral swelling [Recovering/Resolving]
  - Pruritus [Recovering/Resolving]
